FAERS Safety Report 24868100 (Version 3)
Quarter: 2025Q2

REPORT INFORMATION
  Report Type: Report from Study
  Country: IT (occurrence: IT)
  Receive Date: 20250121
  Receipt Date: 20250601
  Transmission Date: 20250717
  Serious: Yes (Other)
  Sender: STEMLINE THERAPEUTICS
  Company Number: IT-STEMLINE THERAPEUTICS, INC-2025-STML-IT000132

PATIENT

DRUGS (2)
  1. ELACESTRANT [Suspect]
     Active Substance: ELACESTRANT
     Indication: Breast cancer stage III
     Dosage: 345 MG, DAILY (1 CAPSULE, DAILY)
     Route: 065
     Dates: start: 20240919, end: 20241211
  2. ELACESTRANT [Suspect]
     Active Substance: ELACESTRANT
     Dosage: 258 MG, DAILY (3 CAPSULES - DAILY)
     Route: 065
     Dates: start: 20250104, end: 20250109

REACTIONS (2)
  - Hepatotoxicity [Unknown]
  - Malignant neoplasm progression [Unknown]

NARRATIVE: CASE EVENT DATE: 20241211
